FAERS Safety Report 6657793-2 (Version None)
Quarter: 2010Q1

REPORT INFORMATION
  Report Type: 
  Country: None (occurrence: None)
  Receive Date: 20100325
  Receipt Date: 20100319
  Transmission Date: 20100710
  Serious: Yes (Life-Threatening, Other)
  Sender: FDA-Public Use
  Company Number: 100120-0000078

PATIENT
  Age: 6 Day
  Sex: Female

DRUGS (2)
  1. INDOCIN [Suspect]
     Indication: PATENT DUCTUS ARTERIOSUS
     Dosage: 0.08 MG; IVDRP
     Route: 041
     Dates: start: 20090531, end: 20090601
  2. SURFACTEN [Concomitant]

REACTIONS (3)
  - OLIGURIA [None]
  - PULMONARY HYPERTENSION [None]
  - PULMONARY OEDEMA NEONATAL [None]
